FAERS Safety Report 9621426 (Version 2)
Quarter: 2013Q4

REPORT INFORMATION
  Report Type: Spontaneous
  Country: US (occurrence: US)
  Receive Date: 20131015
  Receipt Date: 20131202
  Transmission Date: 20140711
  Serious: No
  Sender: FDA-Public Use
  Company Number: US-PFIZER INC-2013291175

PATIENT
  Age: 77 Year
  Sex: Male
  Weight: 90.7 kg

DRUGS (3)
  1. FLECTOR [Suspect]
     Indication: PAIN
     Dosage: UNK, AS NEEDED
     Dates: start: 201303, end: 2013
  2. FLECTOR [Suspect]
     Dosage: UNK, AS NEEDED
     Dates: start: 20131004
  3. VOLTAREN [Suspect]
     Dosage: UNK
     Dates: start: 2013, end: 2013

REACTIONS (1)
  - Drug ineffective [Unknown]
